FAERS Safety Report 24931471 (Version 2)
Quarter: 2025Q3

REPORT INFORMATION
  Report Type: Spontaneous
  Country: US (occurrence: US)
  Receive Date: 20250205
  Receipt Date: 20250804
  Transmission Date: 20251021
  Serious: No
  Sender: AURINIA PHARMACEUTICALS
  Company Number: US-AURINIA PHARMACEUTICALS INC.-AUR-007111

PATIENT
  Sex: Male

DRUGS (2)
  1. LUPKYNIS [Suspect]
     Active Substance: VOCLOSPORIN
     Indication: Lupus nephritis
     Dosage: 23.7 MILLIGRAM, BID
     Route: 048
     Dates: start: 20240806
  2. LUPKYNIS [Suspect]
     Active Substance: VOCLOSPORIN
     Indication: Systemic lupus erythematosus

REACTIONS (4)
  - Nail disorder [Unknown]
  - Nail deformation [Unknown]
  - Onychoclasis [Unknown]
  - Intentional dose omission [Unknown]
